FAERS Safety Report 5243306-9 (Version None)
Quarter: 2007Q1

REPORT INFORMATION
  Report Type: 
  Country: None (occurrence: None)
  Receive Date: 20070215
  Receipt Date: 20070129
  Transmission Date: 20070707
  Serious: Yes (Other)
  Sender: FDA-Public Use
  Company Number: 220593

PATIENT
  Age: 31 Year
  Sex: Male

DRUGS (1)
  1. EFALIZUMAB(EFALIZUMAB) PWDR + SOLVENT, INJECTION SOLN, 125MG [Suspect]
     Indication: PSORIASIS
     Dosage: 1 MG/KG, 1/WEEK, SUBCUTANEOUS
     Route: 058
     Dates: start: 20051130, end: 20051206

REACTIONS (1)
  - VENTRICULAR EXTRASYSTOLES [None]
